FAERS Safety Report 23956841 (Version 2)
Quarter: 2024Q2

REPORT INFORMATION
  Report Type: Spontaneous
  Country: IT (occurrence: IT)
  Receive Date: 20240610
  Receipt Date: 20240614
  Transmission Date: 20240716
  Serious: Yes (Hospitalization)
  Sender: FDA-Public Use
  Company Number: IT-DSJP-DSE-2024-125514

PATIENT
  Age: 76 Year
  Sex: Male

DRUGS (1)
  1. TRASTUZUMAB DERUXTECAN [Suspect]
     Active Substance: TRASTUZUMAB DERUXTECAN
     Indication: HER2 positive gastric cancer
     Dosage: 6.4 MG/KG
     Route: 065
     Dates: start: 20240126

REACTIONS (1)
  - Urinary tract infection [Unknown]
